FAERS Safety Report 5873085-3 (Version None)
Quarter: 2008Q3

REPORT INFORMATION
  Report Type: 
  Country: None (occurrence: None)
  Receive Date: 20080902
  Receipt Date: 20080818
  Transmission Date: 20090109
  Serious: Yes (Hospitalization, Other)
  Sender: FDA-Public Use
  Company Number: 2008BM000125

PATIENT
  Age: 5 Year
  Sex: Male
  Weight: 13.5 kg

DRUGS (6)
  1. NAGLAZYME [Suspect]
     Indication: MUCOPOLYSACCHARIDOSIS IV
     Dosage: 15 MG;QW;IVDRP;QW;IVDRP
     Route: 042
     Dates: start: 20070201, end: 20080610
  2. NAGLAZYME [Suspect]
     Indication: MUCOPOLYSACCHARIDOSIS IV
     Dosage: 15 MG;QW;IVDRP;QW;IVDRP
     Route: 042
     Dates: start: 20080601
  3. DOIPRANE (CON.) [Concomitant]
  4. PARACETAMOL (CON.) [Concomitant]
  5. HYDROXYZINE (CON.) [Concomitant]
  6. WARFARIN (CON.) [Concomitant]

REACTIONS (5)
  - DRUG RESISTANCE [None]
  - NEPHRITIC SYNDROME [None]
  - NEPHROPATHY [None]
  - NEPHROTIC SYNDROME [None]
  - WRONG TECHNIQUE IN DRUG USAGE PROCESS [None]
